FAERS Safety Report 5762548-7 (Version None)
Quarter: 2008Q2

REPORT INFORMATION
  Report Type: 
  Country: None (occurrence: None)
  Receive Date: 20080609
  Receipt Date: 20080527
  Transmission Date: 20081010
  Serious: Yes (Other)
  Sender: FDA-Public Use
  Company Number: B0520657A

PATIENT
  Age: 68 Year
  Sex: Male

DRUGS (2)
  1. FLIXONASE [Suspect]
     Dosage: 400UG TWICE PER DAY
     Route: 045
     Dates: start: 20080313
  2. CELESTON [Concomitant]
     Route: 048
     Dates: start: 20080303, end: 20080401

REACTIONS (5)
  - DIZZINESS [None]
  - GAIT DISTURBANCE [None]
  - MONOPARESIS [None]
  - MONOPLEGIA [None]
  - NAUSEA [None]
